FAERS Safety Report 13352714 (Version 1)
Quarter: 2017Q1

REPORT INFORMATION
  Report Type: Spontaneous
  Country: US (occurrence: US)
  Receive Date: 20170320
  Receipt Date: 20170320
  Transmission Date: 20170429
  Serious: No
  Sender: FDA-Public Use
  Company Number: US-PFIZER INC-2017114298

PATIENT
  Age: 52 Year
  Weight: 59 kg

DRUGS (1)
  1. DUAVEE [Suspect]
     Active Substance: BAZEDOXIFENE ACETATE\ESTROGENS, CONJUGATED
     Indication: HOT FLUSH
     Dosage: TABLET, ORALLY
     Route: 048
     Dates: start: 20170219, end: 20170313

REACTIONS (2)
  - Myalgia [Recovering/Resolving]
  - Bone pain [Recovering/Resolving]

NARRATIVE: CASE EVENT DATE: 201703
